FAERS Safety Report 13446564 (Version 1)
Quarter: 2017Q2

REPORT INFORMATION
  Report Type: Spontaneous
  Country: PL (occurrence: PL)
  Receive Date: 20170417
  Receipt Date: 20170417
  Transmission Date: 20170830
  Serious: Yes (Death, Other)
  Sender: FDA-Public Use
  Company Number: PL-ACCORD-050439

PATIENT
  Age: 67 Year
  Sex: Male

DRUGS (15)
  1. CISPLATIN. [Suspect]
     Active Substance: CISPLATIN
     Indication: ADENOCARCINOMA PANCREAS
     Dates: start: 201109
  2. VALPROIC ACID. [Concomitant]
     Active Substance: VALPROIC ACID
     Indication: EPILEPSY
  3. FOLINIC ACID [Suspect]
     Active Substance: LEUCOVORIN
     Indication: ADENOCARCINOMA PANCREAS
     Dates: start: 201109
  4. CODEINE [Concomitant]
     Active Substance: CODEINE
     Indication: ANALGESIC THERAPY
  5. AMOXICILLIN/CLAVULANIC ACID [Concomitant]
     Route: 048
  6. METAMIZOLE SODIUM [Concomitant]
     Active Substance: METAMIZOLE SODIUM
     Indication: ANALGESIC THERAPY
  7. FLUOROURACIL. [Suspect]
     Active Substance: FLUOROURACIL
     Indication: ADENOCARCINOMA PANCREAS
     Dates: start: 201109
  8. OXYCODONE [Suspect]
     Active Substance: OXYCODONE
     Indication: PAIN
     Dosage: CONTROLLED- RELEASE TABLETS
     Dates: start: 20120807
  9. TRIMETHOPRIM/TRIMETHOPRIM LACTATE/TRIMETHOPRIM SULFATE [Concomitant]
     Indication: MORGANELLA INFECTION
     Dosage: STRENGTH: 240 MG/5 ML
     Route: 048
     Dates: start: 20120621
  10. TRAMADOL. [Concomitant]
     Active Substance: TRAMADOL
     Indication: PAIN
     Dosage: EVERY 6-8 HOURS,50-75 MG IN DROPS AS NECESSARY,400 MG CONTROLLED RELEASE FORM FROM 07-AUG-2012
     Route: 048
  11. PAPAVERINE [Concomitant]
     Active Substance: PAPAVERINE
     Indication: ANALGESIC THERAPY
  12. DEXAMETHASONE. [Concomitant]
     Active Substance: DEXAMETHASONE
     Route: 058
  13. INSULIN [Concomitant]
     Active Substance: INSULIN NOS
     Indication: TYPE 2 DIABETES MELLITUS
  14. CIPROFLOXACIN. [Concomitant]
     Active Substance: CIPROFLOXACIN
     Indication: MORGANELLA INFECTION
     Route: 048
  15. MORPHINE [Concomitant]
     Active Substance: MORPHINE
     Indication: PAIN
     Dosage: STRENGTH: 0.5%?0.5 ML OF SOLUTION ?THEN RECEIVED 5 MG EVERY 4 HOUR FROM 21-JUN-2012
     Route: 048
     Dates: start: 20120615

REACTIONS (6)
  - Visceral venous thrombosis [Unknown]
  - Somnolence [Unknown]
  - Off label use [Unknown]
  - Deep vein thrombosis [Unknown]
  - Pyrexia [Unknown]
  - Apathy [Unknown]

NARRATIVE: CASE EVENT DATE: 201203
